FAERS Safety Report 23195961 (Version 1)
Quarter: 2023Q4

REPORT INFORMATION
  Report Type: Spontaneous
  Country: FR (occurrence: FR)
  Receive Date: 20231117
  Receipt Date: 20231117
  Transmission Date: 20240110
  Serious: Yes (Other)
  Sender: FDA-Public Use
  Company Number: None

PATIENT
  Age: 46 Year
  Sex: Female

DRUGS (1)
  1. COPAXONE [Suspect]
     Active Substance: GLATIRAMER ACETATE
     Indication: Multiple sclerosis
     Dosage: UNIT DOSE: 3 DF, FREQUENCY TIME: 1 WEEKS, DURATION: 3 YEARS, COPAXONE 40 MG/ML, SOLUTION FOR INJECTI
     Dates: start: 201912, end: 202310

REACTIONS (2)
  - Administration site ulcer [Recovering/Resolving]
  - Administration site necrosis [Recovering/Resolving]

NARRATIVE: CASE EVENT DATE: 20231001
